FAERS Safety Report 21485575 (Version 1)
Quarter: 2022Q4

REPORT INFORMATION
  Report Type: Spontaneous
  Country: US (occurrence: None)
  Receive Date: 20221019
  Receipt Date: 20221019
  Transmission Date: 20230113
  Serious: No
  Sender: FDA-Public Use
  Company Number: None

PATIENT
  Sex: Male

DRUGS (1)
  1. AUSTEDO [Suspect]
     Active Substance: DEUTETRABENAZINE
     Indication: Dystonia
     Dosage: FREQUENCY : TWICE A DAY;?
     Route: 048
     Dates: start: 202210

REACTIONS (2)
  - Drug ineffective [None]
  - Therapy cessation [None]
